FAERS Safety Report 6726456-7 (Version None)
Quarter: 2010Q2

REPORT INFORMATION
  Report Type: 
  Country: None (occurrence: None)
  Receive Date: 20100514
  Receipt Date: 20100506
  Transmission Date: 20101027
  Serious: Yes (Other)
  Sender: FDA-Public Use
  Company Number: US-NOVOPROD-308276

PATIENT
  Sex: Male
  Weight: 96.5 kg

DRUGS (1)
  1. NOVOSEVEN RT [Suspect]
     Indication: HAEMOPHILIA
     Dosage: 90 UG/KG, EVERY 3 HOURS
     Route: 042

REACTIONS (1)
  - CHRONIC MYELOID LEUKAEMIA [None]
